FAERS Safety Report 6133341-0 (Version None)
Quarter: 2009Q1

REPORT INFORMATION
  Report Type: 
  Country: None (occurrence: None)
  Receive Date: 20090326
  Receipt Date: 20090325
  Transmission Date: 20090719
  Serious: Yes (Other)
  Sender: FDA-Public Use
  Company Number: US-RB-007488-08

PATIENT
  Age: 52 Year
  Sex: Female

DRUGS (9)
  1. SUBOXONE [Suspect]
     Indication: DRUG USE FOR UNKNOWN INDICATION
     Route: 065
     Dates: start: 20080903
  2. CYMBALTA [Concomitant]
     Indication: DEPRESSION
     Dosage: FORM, DOSE, FREQUENCY ARE UNKNOWN
     Route: 065
  3. ATENOLOL [Concomitant]
     Indication: HEART RATE
     Dosage: FORM, DOSE, FREQUENCY ARE UNKNOWN
     Route: 065
  4. ZANAFLEX [Concomitant]
     Indication: MUSCLE SPASMS
     Dosage: FORM, DOSE, FREQUENCY ARE UNKNOWN,
     Route: 065
  5. AMITRIPTYLINE HCL [Concomitant]
     Indication: FIBROMYALGIA
     Dosage: FORM, DOSE, FREQUENCY ARE UNKNOWN
     Route: 065
  6. BACLOFEN [Concomitant]
     Dosage: FORM, DOSE AND FREQUENCY ARE UNKNOWN
     Route: 065
  7. ENBREL [Concomitant]
     Dosage: FORM, DOSE AND FREQUENCY ARE UNKNOWN
     Route: 065
  8. PROZAC [Concomitant]
     Indication: DEPRESSION
     Dosage: FORM, DOSE AND FREQUENCY ARE UNKNOWN
     Route: 065
  9. ULTRAM [Concomitant]
     Indication: DRUG USE FOR UNKNOWN INDICATION
     Dosage: FORM, DOSE AND FREQUENCY ARE UNKNOWN
     Route: 065

REACTIONS (8)
  - BALANCE DISORDER [None]
  - BLOOD PRESSURE DECREASED [None]
  - CONVULSION [None]
  - DIZZINESS [None]
  - FALL [None]
  - LOSS OF CONSCIOUSNESS [None]
  - PAIN [None]
  - SENSORY LOSS [None]
